FAERS Safety Report 20920865 (Version 1)
Quarter: 2022Q2

REPORT INFORMATION
  Report Type: Spontaneous
  Country: US (occurrence: None)
  Receive Date: 20220606
  Receipt Date: 20220606
  Transmission Date: 20220721
  Serious: Yes (Hospitalization)
  Sender: FDA-Public Use
  Company Number: None

PATIENT
  Age: 67 Year
  Sex: Female
  Weight: 90.5 kg

DRUGS (9)
  1. VANCOMYCIN [Suspect]
     Active Substance: VANCOMYCIN
     Indication: Osteomyelitis
     Dosage: OTHER FREQUENCY : EVERY 48 HOURS;?
     Route: 042
     Dates: start: 20220507, end: 20220521
  2. Ceftriaxone 2 grams [Concomitant]
     Dates: start: 20220507
  3. Acetaminophen 325mg [Concomitant]
     Dates: start: 20220507
  4. AMLODIPINE BESYLATE [Concomitant]
     Active Substance: AMLODIPINE BESYLATE
     Dates: start: 20220507
  5. Hydralazine100mg [Concomitant]
     Dates: start: 20220507
  6. INSULIN GLARGINE [Concomitant]
     Active Substance: INSULIN GLARGINE
     Dates: start: 20220507
  7. INSULIN LISPRO [Concomitant]
     Active Substance: INSULIN LISPRO
     Dates: start: 20220507
  8. GLIPIZIDE ER [Concomitant]
     Active Substance: GLIPIZIDE
     Dates: start: 20220507
  9. mupirocin external ointment 2% [Concomitant]
     Dates: start: 20220507

REACTIONS (1)
  - Blood creatinine increased [None]

NARRATIVE: CASE EVENT DATE: 20220521
